FAERS Safety Report 18343653 (Version 3)
Quarter: 2020Q4

REPORT INFORMATION
  Report Type: Spontaneous
  Country: US (occurrence: US)
  Receive Date: 20201005
  Receipt Date: 20201118
  Transmission Date: 20210113
  Serious: No
  Sender: FDA-Public Use
  Company Number: NVSC2020US263607

PATIENT
  Sex: Male

DRUGS (7)
  1. VIVELLE-DOT [Suspect]
     Active Substance: ESTRADIOL
     Dosage: 0.075 MG
     Route: 065
  2. VIVELLE [Suspect]
     Active Substance: ESTRADIOL
     Indication: PRODUCT USED FOR UNKNOWN INDICATION
     Dosage: 0.75 MG, QW2
     Route: 065
  3. TYLENOL [Concomitant]
     Active Substance: ACETAMINOPHEN
     Indication: PRODUCT USED FOR UNKNOWN INDICATION
     Dosage: 1000 MG
     Route: 065
  4. VIVELLE-DOT [Suspect]
     Active Substance: ESTRADIOL
     Dosage: 0.1 MG (1 PATCH 3 TIMES A WEEK)
     Route: 062
  5. ESTRADIOL. [Suspect]
     Active Substance: ESTRADIOL
     Indication: PRODUCT USED FOR UNKNOWN INDICATION
     Dosage: UNK
     Route: 065
  6. VIVELLE-DOT [Suspect]
     Active Substance: ESTRADIOL
     Indication: PRODUCT USED FOR UNKNOWN INDICATION
     Dosage: 0.1 MG
     Route: 065
  7. VIVELLE-DOT [Suspect]
     Active Substance: ESTRADIOL
     Dosage: 0.075 MG
     Route: 065

REACTIONS (2)
  - Headache [Unknown]
  - Drug intolerance [Unknown]
